FAERS Safety Report 20659123 (Version 2)
Quarter: 2022Q2

REPORT INFORMATION
  Report Type: Spontaneous
  Country: US (occurrence: US)
  Receive Date: 20220331
  Receipt Date: 20220505
  Transmission Date: 20220721
  Serious: Yes (Other)
  Sender: FDA-Public Use
  Company Number: US-BAYER-2022A046633

PATIENT
  Age: 14 Year
  Sex: Female

DRUGS (1)
  1. MIRENA [Suspect]
     Active Substance: LEVONORGESTREL
     Indication: Contraception
     Dosage: 20?G/DAY
     Route: 015
     Dates: start: 20220124, end: 20220303

REACTIONS (3)
  - Genital haemorrhage [None]
  - Medical device pain [None]
  - Vulvovaginal discomfort [None]

NARRATIVE: CASE EVENT DATE: 20020201
